APPROVED DRUG PRODUCT: METFORMIN HYDROCHLORIDE
Active Ingredient: METFORMIN HYDROCHLORIDE
Strength: 1GM
Dosage Form/Route: TABLET, EXTENDED RELEASE;ORAL
Application: A211163 | Product #001
Applicant: MACLEODS PHARMACEUTICALS LTD
Approved: Mar 13, 2024 | RLD: No | RS: No | Type: DISCN